FAERS Safety Report 7006097-7 (Version None)
Quarter: 2010Q3

REPORT INFORMATION
  Report Type: 
  Country: None (occurrence: None)
  Receive Date: 20100921
  Receipt Date: 20100909
  Transmission Date: 20110219
  Serious: Yes (Other)
  Sender: FDA-Public Use
  Company Number: US-PFIZER INC-2010114226

PATIENT

DRUGS (1)
  1. LYRICA [Suspect]
     Dosage: 200 MG DAILY

REACTIONS (2)
  - AMNESTIC DISORDER [None]
  - SOMNAMBULISM [None]
